FAERS Safety Report 9808195 (Version 3)
Quarter: 2014Q3

REPORT INFORMATION
  Report Type: Spontaneous
  Country: US (occurrence: US)
  Receive Date: 20140110
  Receipt Date: 20140917
  Transmission Date: 20150326
  Serious: Yes (Hospitalization, Disabling, Other)
  Sender: FDA-Public Use
  Company Number: US-009507513-1401USA002592

PATIENT
  Sex: Female
  Weight: 64.85 kg

DRUGS (8)
  1. FOSAMAX [Suspect]
     Active Substance: ALENDRONATE SODIUM
     Indication: OSTEOPENIA
     Dosage: 70 MG, UNK
     Route: 048
     Dates: start: 20070307, end: 20070811
  2. VITAMIN E [Concomitant]
     Active Substance: .ALPHA.-TOCOPHEROL
     Indication: ROUTINE HEALTH MAINTENANCE
     Dosage: 400 MG, UNK
     Route: 048
     Dates: start: 2005
  3. FOSAMAX [Suspect]
     Active Substance: ALENDRONATE SODIUM
     Indication: OSTEOPOROSIS
     Dosage: 70 MG, UNK
     Route: 048
     Dates: start: 20010514, end: 20060428
  4. ASCORBIC ACID. [Concomitant]
     Active Substance: ASCORBIC ACID
     Indication: ROUTINE HEALTH MAINTENANCE
     Dosage: 500 MG, QD
     Route: 048
     Dates: start: 2000
  5. FOSAMAX PLUS D [Suspect]
     Active Substance: ALENDRONATE SODIUM\CHOLECALCIFEROL
     Indication: OSTEOPENIA
     Dosage: 70MG/2800IU, UNK
     Route: 048
     Dates: start: 20060428, end: 20070307
  6. ALENDRONATE SODIUM. [Suspect]
     Active Substance: ALENDRONATE SODIUM
     Indication: OSTEOPENIA
     Dosage: 70 MG, UNK
     Route: 048
     Dates: start: 20080501
  7. ALENDRONATE SODIUM. [Suspect]
     Active Substance: ALENDRONATE SODIUM
     Dosage: 70 MG, UNK
     Route: 048
     Dates: start: 20100114, end: 20100207
  8. FOSAMAX PLUS D [Suspect]
     Active Substance: ALENDRONATE SODIUM\CHOLECALCIFEROL
     Dosage: 70MG/2800IU, UNK
     Route: 048
     Dates: start: 20070811, end: 20100415

REACTIONS (26)
  - Type V hyperlipidaemia [Unknown]
  - Uterine prolapse [Unknown]
  - Fatigue [Unknown]
  - Anxiety [Unknown]
  - Incisional drainage [Unknown]
  - Neuropathy peripheral [Unknown]
  - Carotid artery stenosis [Unknown]
  - Bladder disorder [Unknown]
  - Low turnover osteopathy [Not Recovered/Not Resolved]
  - Back pain [Unknown]
  - Pain in extremity [Unknown]
  - Femur fracture [Not Recovered/Not Resolved]
  - Osteoporosis [Not Recovered/Not Resolved]
  - Upper limb fracture [Unknown]
  - Diverticulum intestinal [Unknown]
  - Hypertensive heart disease [Unknown]
  - Peripheral arterial occlusive disease [Unknown]
  - Stress fracture [Not Recovered/Not Resolved]
  - Renal failure chronic [Not Recovered/Not Resolved]
  - Hypertension [Unknown]
  - Intramedullary rod insertion [Unknown]
  - Femur fracture [Not Recovered/Not Resolved]
  - Anaemia postoperative [Recovering/Resolving]
  - Renal cyst [Unknown]
  - Depression [Unknown]
  - Skin infection [Unknown]

NARRATIVE: CASE EVENT DATE: 2006
